FAERS Safety Report 19614601 (Version 1)
Quarter: 2021Q3

REPORT INFORMATION
  Report Type: Spontaneous
  Country: US (occurrence: US)
  Receive Date: 20210727
  Receipt Date: 20210727
  Transmission Date: 20211014
  Serious: Yes (Hospitalization)
  Sender: FDA-Public Use
  Company Number: None

PATIENT
  Sex: Male

DRUGS (16)
  1. LOSARTAN. [Concomitant]
     Active Substance: LOSARTAN
  2. HUMALOG [Concomitant]
     Active Substance: INSULIN LISPRO
  3. METFORMIN [Concomitant]
     Active Substance: METFORMIN HYDROCHLORIDE
  4. HUMIRA [Suspect]
     Active Substance: ADALIMUMAB
     Indication: RHEUMATOID ARTHRITIS
     Dosage: ?          OTHER FREQUENCY:QOWK;?
     Route: 058
     Dates: start: 20170725
  5. SIMVASTATIN. [Concomitant]
     Active Substance: SIMVASTATIN
  6. HYDROXYCHLOR [Concomitant]
     Active Substance: HYDROXYCHLOROQUINE
  7. FENOFIBRATE. [Concomitant]
     Active Substance: FENOFIBRATE
  8. TOUJEO SOLO [Concomitant]
  9. GLUCOTROL [Concomitant]
     Active Substance: GLIPIZIDE
  10. DULOXETINE. [Concomitant]
     Active Substance: DULOXETINE
  11. CYMBALTA [Concomitant]
     Active Substance: DULOXETINE HYDROCHLORIDE
  12. CALCIFEROL [Concomitant]
  13. LYRICA [Concomitant]
     Active Substance: PREGABALIN
  14. CLARITIN [Concomitant]
     Active Substance: LORATADINE
  15. OMEGA 3 [Concomitant]
     Active Substance: OMEGA-3 FATTY ACIDS
  16. MENS MULTIVITAMIN [Concomitant]

REACTIONS (2)
  - Rib fracture [None]
  - Lung perforation [None]
